FAERS Safety Report 15011170 (Version 1)
Quarter: 2018Q2

REPORT INFORMATION
  Report Type: Spontaneous
  Country: FR (occurrence: FR)
  Receive Date: 20180614
  Receipt Date: 20180614
  Transmission Date: 20180711
  Serious: Yes (Other)
  Sender: FDA-Public Use
  Company Number: FR-CONCORDIA PHARMACEUTICALS INC.-E2B_00012479

PATIENT
  Age: 50 Year
  Sex: Male
  Weight: 68 kg

DRUGS (3)
  1. PREDNISOLONE. [Suspect]
     Active Substance: PREDNISOLONE
     Indication: INFECTION
     Route: 048
     Dates: start: 20180308, end: 20180311
  2. JOSACINE 500 MG, COMPRIM? PELLICUL? [Concomitant]
     Indication: INFECTION
     Route: 048
     Dates: start: 20180308, end: 20180312
  3. TUSSIDANE 1,5 MG/ML, SIROP [Concomitant]
     Route: 048
     Dates: start: 20180308, end: 20180315

REACTIONS (2)
  - Chorioretinitis [Recovering/Resolving]
  - Vision blurred [Recovering/Resolving]

NARRATIVE: CASE EVENT DATE: 20180312
